FAERS Safety Report 8250584-0 (Version None)
Quarter: 2012Q2

REPORT INFORMATION
  Report Type: 
  Country: None (occurrence: None)
  Receive Date: 20120402
  Receipt Date: 20120402
  Transmission Date: 20120825
  Serious: Yes (Other)
  Sender: FDA-Public Use
  Company Number: None

PATIENT
  Age: 37 Year
  Sex: Female
  Weight: 58.967 kg

DRUGS (1)
  1. VIIBRYD [Suspect]

REACTIONS (8)
  - ACNE [None]
  - INFLUENZA [None]
  - DIZZINESS [None]
  - DRUG WITHDRAWAL SYNDROME [None]
  - MALAISE [None]
  - WEIGHT INCREASED [None]
  - DIARRHOEA [None]
  - NO THERAPEUTIC RESPONSE [None]
